FAERS Safety Report 9189955 (Version 1)
Quarter: 2013Q1

REPORT INFORMATION
  Report Type: Spontaneous
  Country: IT (occurrence: None)
  Receive Date: 20130322
  Receipt Date: 20130322
  Transmission Date: 20140127
  Serious: Yes (Other)
  Sender: FDA-Public Use
  Company Number: 1638289

PATIENT
  Age: 31 Year
  Sex: Female

DRUGS (1)
  1. (OXALIPLATIN) [Suspect]
     Indication: COLON CANCER
     Dosage: CYCLICAL
     Route: 042
     Dates: start: 20121016, end: 20130311

REACTIONS (4)
  - Dysphagia [None]
  - Tongue oedema [None]
  - Sensory disturbance [None]
  - Hypersensitivity [None]
